FAERS Safety Report 15260900 (Version 2)
Quarter: 2018Q3

REPORT INFORMATION
  Report Type: Report from Study
  Country: JP (occurrence: JP)
  Receive Date: 20180809
  Receipt Date: 20180904
  Transmission Date: 20181010
  Serious: Yes (Hospitalization, Other)
  Sender: FDA-Public Use
  Company Number: JP-ACTELION-A-CH2018-176964

PATIENT
  Age: 58 Year
  Sex: Female

DRUGS (20)
  1. REVATIO [Concomitant]
     Active Substance: SILDENAFIL CITRATE
  2. OXINORM [Concomitant]
  3. DORNER [Concomitant]
     Active Substance: BERAPROST SODIUM
  4. DIART [Concomitant]
     Active Substance: AZOSEMIDE
  5. OXYGEN. [Concomitant]
     Active Substance: OXYGEN
  6. HOKUNALIN [Concomitant]
     Active Substance: TULOBUTEROL
  7. HUSCODE [Concomitant]
     Active Substance: CHLORPHENIRAMINE MALEAT\DIHYDROCODEINE PHOSPHATE\METHYLEPHEDRINE HYDROCHLORIDE, DL-
  8. BRUFEN [Concomitant]
     Active Substance: IBUPROFEN
  9. PANTOSIN [Concomitant]
     Active Substance: PANTETHINE
  10. MAGMITT [Concomitant]
     Active Substance: MAGNESIUM OXIDE
  11. NOVAMIN [Concomitant]
  12. SPIRONOLACTONE. [Concomitant]
     Active Substance: SPIRONOLACTONE
  13. NEXIUM [Concomitant]
     Active Substance: ESOMEPRAZOLE MAGNESIUM
  14. LASIX [Concomitant]
     Active Substance: FUROSEMIDE
  15. LIXIANA [Concomitant]
     Active Substance: EDOXABAN TOSYLATE
  16. OXYCONTIN [Concomitant]
     Active Substance: OXYCODONE HYDROCHLORIDE
  17. HEPARINOID [Concomitant]
     Active Substance: CHONDROITIN SULFATE (BOVINE)
  18. CELESTAMINE [Concomitant]
     Active Substance: BETAMETHASONE\DEXCHLORPHENIRAMINE MALEATE
  19. ASPARA POTASSIUM [Concomitant]
     Active Substance: POTASSIUM ASPARTATE
  20. OPSUMIT [Suspect]
     Active Substance: MACITENTAN
     Indication: PULMONARY ARTERIAL HYPERTENSION
     Dosage: 10 MG, QD
     Route: 048
     Dates: start: 20170915

REACTIONS (4)
  - Wheezing [Recovered/Resolved]
  - Dyspnoea [Recovered/Resolved]
  - Oxygen saturation decreased [Recovered/Resolved]
  - Chronic obstructive pulmonary disease [Recovered/Resolved]

NARRATIVE: CASE EVENT DATE: 20171121
